FAERS Safety Report 5917467-X (Version None)
Quarter: 2008Q4

REPORT INFORMATION
  Report Type: 
  Country: None (occurrence: None)
  Receive Date: 20081009
  Receipt Date: 20081009
  Transmission Date: 20090506
  Serious: Yes (Other)
  Sender: FDA-Public Use
  Company Number: None

PATIENT
  Age: 72 Year
  Sex: Female

DRUGS (1)
  1. PROAIR HFA [Suspect]
     Indication: DYSPNOEA
     Dosage: 2 PUFFS Q4H PRN  INHAL
     Route: 055
     Dates: start: 20081001, end: 20081002

REACTIONS (4)
  - DRUG HYPERSENSITIVITY [None]
  - LIP SWELLING [None]
  - OEDEMA MOUTH [None]
  - PRODUCT QUALITY ISSUE [None]
